FAERS Safety Report 18565194 (Version 1)
Quarter: 2020Q4

REPORT INFORMATION
  Report Type: Spontaneous
  Country: JP (occurrence: JP)
  Receive Date: 20201201
  Receipt Date: 20201201
  Transmission Date: 20210114
  Serious: Yes (Hospitalization, Other)
  Sender: FDA-Public Use
  Company Number: JP-PFIZER INC-2020466681

PATIENT
  Age: 75 Year
  Sex: Female
  Weight: 40 kg

DRUGS (8)
  1. CANDESARTAN CILEXETIL-HYDROCHLOROTHIAZIDE [Suspect]
     Active Substance: CANDESARTAN CILEXETIL\HYDROCHLOROTHIAZIDE
  2. TACROLIMUS. [Interacting]
     Active Substance: TACROLIMUS
  3. METFORMIN HCL [Suspect]
     Active Substance: METFORMIN HYDROCHLORIDE
  4. DULOXETINE. [Suspect]
     Active Substance: DULOXETINE
  5. PREGABALIN. [Suspect]
     Active Substance: PREGABALIN
  6. LOXOPROFEN [Interacting]
     Active Substance: LOXOPROFEN
  7. CLARITHROMYCIN. [Interacting]
     Active Substance: CLARITHROMYCIN
  8. METHOTREXATE SODIUM. [Interacting]
     Active Substance: METHOTREXATE SODIUM

REACTIONS (2)
  - Drug interaction [Unknown]
  - Renal impairment [Unknown]
